FAERS Safety Report 4939726-X (Version None)
Quarter: 2006Q1

REPORT INFORMATION
  Report Type: 
  Country: None (occurrence: None)
  Receive Date: 20060307
  Receipt Date: 20060223
  Transmission Date: 20060701
  Serious: Yes (Other)
  Sender: FDA-Public Use
  Company Number: 2006028437

PATIENT
  Age: 6 Year
  Sex: Male
  Weight: 23.6 kg

DRUGS (1)
  1. GENOTROPIN [Suspect]
     Indication: HYPOPITUITARISM
     Dosage: 0.6 MG (0.6 MG, DAILY), SUBCUTANEOUS
     Route: 058
     Dates: start: 20050401

REACTIONS (3)
  - MEDULLOBLASTOMA [None]
  - NEOPLASM RECURRENCE [None]
  - RECURRENT CANCER [None]
